FAERS Safety Report 5342827-8 (Version None)
Quarter: 2007Q2

REPORT INFORMATION
  Report Type: 
  Country: None (occurrence: None)
  Receive Date: 20070601
  Receipt Date: 20070524
  Transmission Date: 20071010
  Serious: Yes (Other)
  Sender: FDA-Public Use
  Company Number: US-PFIZER INC-2007042597

PATIENT
  Sex: Female

DRUGS (12)
  1. XANAX [Suspect]
     Indication: ANXIETY
     Dosage: DAILY DOSE:.5MG
     Route: 048
  2. ALL OTHER THERAPEUTIC PRODUCTS [Suspect]
     Indication: DRUG DEPENDENCE
     Dosage: DAILY DOSE:4MG
  3. ACETYLSALICYLIC ACID SRT [Concomitant]
  4. PAXIL [Concomitant]
     Dates: start: 20050109, end: 20051113
  5. ACCURETIC [Concomitant]
  6. CADUET [Concomitant]
  7. LEXAPRO [Concomitant]
  8. DETROL LA [Concomitant]
     Dates: start: 20051212
  9. BENICAR [Concomitant]
  10. LEVOXYL [Concomitant]
  11. PROZAC [Concomitant]
  12. PREDNISONE TAB [Concomitant]

REACTIONS (8)
  - CONSTIPATION [None]
  - DECREASED APPETITE [None]
  - DIZZINESS [None]
  - FACIAL PAIN [None]
  - GASTROINTESTINAL INFLAMMATION [None]
  - GASTROOESOPHAGEAL REFLUX DISEASE [None]
  - NIPPLE PAIN [None]
  - UTERINE LEIOMYOMA [None]
